FAERS Safety Report 8509112-4 (Version None)
Quarter: 2012Q3

REPORT INFORMATION
  Report Type: 
  Country: None (occurrence: None)
  Receive Date: 20120713
  Receipt Date: 20120709
  Transmission Date: 20120928
  Serious: Yes (Hospitalization)
  Sender: FDA-Public Use
  Company Number: US-GLAXOSMITHKLINE-A0875681A

PATIENT
  Age: 55 Year
  Sex: Male

DRUGS (1)
  1. AVANDIA [Suspect]
     Indication: DIABETES MELLITUS
     Dates: start: 20010101

REACTIONS (4)
  - CARDIAC FAILURE CONGESTIVE [None]
  - OEDEMA [None]
  - CARDIOVASCULAR DISORDER [None]
  - RENAL FAILURE [None]
